FAERS Safety Report 24262238 (Version 1)
Quarter: 2024Q3

REPORT INFORMATION
  Report Type: Spontaneous
  Country: SA (occurrence: SA)
  Receive Date: 20240829
  Receipt Date: 20240829
  Transmission Date: 20241017
  Serious: Yes (Other)
  Sender: RANBAXY
  Company Number: SA-SUN PHARMACEUTICAL INDUSTRIES LTD-2024R1-464784

PATIENT
  Age: 10 Month
  Sex: Male
  Weight: 5.9 kg

DRUGS (2)
  1. SODIUM CHLORIDE [Suspect]
     Active Substance: SODIUM CHLORIDE
     Indication: Hypoaldosteronism
     Dosage: 3 MILLIGRAM/KILOGRAM, BID
     Route: 065
  2. FLUDROCORTISONE [Suspect]
     Active Substance: FLUDROCORTISONE
     Indication: Hypoaldosteronism
     Dosage: 0.1 MILLIGRAM, BID
     Route: 048

REACTIONS (1)
  - Therapeutic response decreased [Unknown]
